FAERS Safety Report 5173273-8 (Version None)
Quarter: 2006Q4

REPORT INFORMATION
  Report Type: 
  Country: None (occurrence: None)
  Receive Date: 20061206
  Receipt Date: 20061120
  Transmission Date: 20070319
  Serious: Yes (Life-Threatening)
  Sender: FDA-Public Use
  Company Number: 30627

PATIENT
  Age: 30 Year
  Sex: Female

DRUGS (3)
  1. FLECAINIDE ACETATE [Suspect]
     Indication: DRUG USE FOR UNKNOWN INDICATION
     Dosage: (100 MG, 2 IN 1 DAY(S), ORAL
     Route: 048
  2. OXYCODONE HCL [Concomitant]
  3. INSULIN [Concomitant]

REACTIONS (5)
  - HYPOAESTHESIA [None]
  - INTENTIONAL OVERDOSE [None]
  - PARAESTHESIA [None]
  - VENTRICULAR TACHYCARDIA [None]
  - VOMITING [None]
